FAERS Safety Report 23995411 (Version 3)
Quarter: 2024Q3

REPORT INFORMATION
  Report Type: Report from Study
  Country: JP (occurrence: JP)
  Receive Date: 20240620
  Receipt Date: 20240912
  Transmission Date: 20241017
  Serious: Yes (Hospitalization, Other)
  Sender: PFIZER
  Company Number: JP-PFIZER INC-PV202400078231

PATIENT
  Age: 69 Year
  Sex: Male
  Weight: 56 kg

DRUGS (23)
  1. BORTEZOMIB [Suspect]
     Active Substance: BORTEZOMIB
     Indication: Primary amyloidosis
     Dosage: 1.1 MG, WEEKLY
     Route: 058
     Dates: start: 20240327
  2. INVESTIGATIONAL PRODUCT [Suspect]
     Active Substance: INVESTIGATIONAL PRODUCT
     Indication: Primary amyloidosis
     Dosage: UNK
     Dates: start: 20240327, end: 20240327
  3. INVESTIGATIONAL PRODUCT [Suspect]
     Active Substance: INVESTIGATIONAL PRODUCT
     Dosage: UNK
     Dates: start: 20240522, end: 20240522
  4. DARATUMUMAB [Suspect]
     Active Substance: DARATUMUMAB
     Dosage: UNK
     Dates: start: 20240327
  5. CYCLOPHOSPHAMIDE [Suspect]
     Active Substance: CYCLOPHOSPHAMIDE
     Dosage: UNK
     Dates: start: 20240327
  6. DEXAMETHASONE [Suspect]
     Active Substance: DEXAMETHASONE
     Dosage: UNK
     Dates: start: 20240327
  7. AZOSEMIDE [Concomitant]
     Active Substance: AZOSEMIDE
     Dosage: UNK
     Dates: start: 20231014
  8. DAPAGLIFLOZIN PROPANEDIOL [Concomitant]
     Active Substance: DAPAGLIFLOZIN PROPANEDIOL
     Dosage: UNK
     Dates: start: 20231028
  9. PRASUGREL HYDROCHLORIDE [Concomitant]
     Active Substance: PRASUGREL HYDROCHLORIDE
     Dosage: UNK
     Dates: start: 20230419
  10. LANSOPRAZOLE [Concomitant]
     Active Substance: LANSOPRAZOLE
     Dosage: UNK
     Dates: start: 20230419
  11. PITAVASTATIN [Concomitant]
     Active Substance: PITAVASTATIN
     Dosage: UNK
     Dates: start: 2021
  12. INSULIN LISPRO [Concomitant]
     Active Substance: INSULIN LISPRO
     Dosage: UNK
     Dates: start: 20240301
  13. INSULIN DEGLUDEC [Concomitant]
     Active Substance: INSULIN DEGLUDEC
     Dosage: UNK
     Dates: start: 20240301
  14. URSODIOL [Concomitant]
     Active Substance: URSODIOL
     Dosage: UNK
     Dates: start: 20240312
  15. FEBUXOSTAT [Concomitant]
     Active Substance: FEBUXOSTAT
     Dosage: UNK
     Dates: start: 20240312
  16. ACETAMINOPHEN [Concomitant]
     Active Substance: ACETAMINOPHEN
     Dosage: UNK
     Dates: start: 20240327
  17. MONTELUKAST [Concomitant]
     Active Substance: MONTELUKAST SODIUM
     Dosage: UNK
     Dates: start: 20240327
  18. DIPHENHYDRAMINE [Concomitant]
     Active Substance: DIPHENHYDRAMINE
     Dosage: UNK
     Dates: start: 20240327
  19. FUROSEMIDE [Concomitant]
     Active Substance: FUROSEMIDE
     Dosage: UNK
     Dates: start: 20240423
  20. TOLVAPTAN [Concomitant]
     Active Substance: TOLVAPTAN
     Dosage: UNK
     Dates: start: 20240424
  21. SPIRONOLACTONE [Concomitant]
     Active Substance: SPIRONOLACTONE
     Dosage: UNK
     Dates: start: 20240523
  22. ACYCLOVIR [Concomitant]
     Active Substance: ACYCLOVIR
     Dosage: UNK
     Dates: start: 20240327
  23. PENTAMIDINE [Concomitant]
     Active Substance: PENTAMIDINE
     Dosage: UNK
     Dates: start: 20240402

REACTIONS (2)
  - Fluid retention [Recovering/Resolving]
  - Conduction disorder [Recovered/Resolved]

NARRATIVE: CASE EVENT DATE: 20240610
